FAERS Safety Report 4969155-4 (Version None)
Quarter: 2006Q2

REPORT INFORMATION
  Report Type: 
  Country: None (occurrence: None)
  Receive Date: 20060411
  Receipt Date: 20050819
  Transmission Date: 20061013
  Serious: No
  Sender: FDA-Public Use
  Company Number: US-BRISTOL-MYERS SQUIBB COMPANY-13084009

PATIENT
  Age: 40 Year
  Sex: Female
  Weight: 74 kg

DRUGS (9)
  1. PARAPLATIN [Suspect]
     Indication: OVARIAN CANCER
     Route: 042
     Dates: start: 20040914, end: 20040914
  2. TAXOL [Concomitant]
     Dates: start: 20040914, end: 20040914
  3. GEMZAR [Concomitant]
     Dates: start: 20040914, end: 20040914
  4. ZYRTEC [Concomitant]
  5. DECADRON [Concomitant]
     Indication: PREMEDICATION
     Route: 048
  6. TAGAMET [Concomitant]
     Indication: PREMEDICATION
  7. BENADRYL [Concomitant]
     Indication: PREMEDICATION
  8. ATIVAN [Concomitant]
     Indication: PREMEDICATION
  9. KYTRIL [Concomitant]
     Indication: PREMEDICATION

REACTIONS (4)
  - ERYTHEMA [None]
  - NAUSEA [None]
  - OEDEMA PERIPHERAL [None]
  - PRURITUS [None]
